FAERS Safety Report 20922556 (Version 1)
Quarter: 2022Q2

REPORT INFORMATION
  Report Type: Spontaneous
  Country: GB (occurrence: GB)
  Receive Date: 20220607
  Receipt Date: 20220607
  Transmission Date: 20220721
  Serious: Yes (Death)
  Sender: FDA-Public Use
  Company Number: GB-LUPIN PHARMACEUTICALS INC.-2022-08182

PATIENT
  Age: 36 Year
  Sex: Male

DRUGS (1)
  1. TRAMADOL [Suspect]
     Active Substance: TRAMADOL
     Indication: Pain
     Dosage: UNK (HE TOOK TWICE THE RECOMMENDED MAXIMUM DOSE)
     Route: 065

REACTIONS (2)
  - Overdose [Fatal]
  - Toxicity to various agents [Fatal]
